FAERS Safety Report 18891802 (Version 1)
Quarter: 2021Q1

REPORT INFORMATION
  Report Type: Spontaneous
  Country: US (occurrence: US)
  Receive Date: 20210215
  Receipt Date: 20210215
  Transmission Date: 20210420
  Serious: No
  Sender: FDA-Public Use
  Company Number: US-009507513-2102USA004775

PATIENT
  Age: 26 Year
  Weight: 91.17 kg

DRUGS (1)
  1. ETONOGESTREL IMPLANT [Suspect]
     Active Substance: ETONOGESTREL
     Dosage: IMPLANT, LEFT ARM (NON?DOMINANT)
     Dates: start: 201410, end: 20210210

REACTIONS (3)
  - Incorrect product administration duration [Unknown]
  - Complication associated with device [Recovered/Resolved]
  - Device placement issue [Unknown]

NARRATIVE: CASE EVENT DATE: 201710
